FAERS Safety Report 4352550-4 (Version None)
Quarter: 2004Q2

REPORT INFORMATION
  Report Type: 
  Country: None (occurrence: None)
  Receive Date: 20040427
  Receipt Date: 20040108
  Transmission Date: 20050107
  Serious: No
  Sender: FDA-Public Use
  Company Number: WAES 0401USA00588

PATIENT
  Age: 41 Year
  Sex: Female
  Weight: 68.0396 kg

DRUGS (8)
  1. EMEND [Suspect]
     Indication: PROPHYLACTIC CHEMOTHERAPY
     Dosage: SEE IMAGE
     Route: 048
     Dates: start: 20040107, end: 20040107
  2. EMEND [Suspect]
     Indication: PROPHYLACTIC CHEMOTHERAPY
     Dosage: SEE IMAGE
     Route: 048
     Dates: start: 20040108, end: 20040109
  3. INJ ADRIAMYCIN [Suspect]
     Dosage: 106MG/IV
     Route: 042
     Dates: start: 20040107, end: 20040107
  4. COUMADIN [Concomitant]
  5. VYTOXAN [Concomitant]
  6. DECADRON [Concomitant]
  7. SENOKOT [Concomitant]
  8. ZOFRAN [Concomitant]

REACTIONS (4)
  - DIZZINESS [None]
  - HOT FLUSH [None]
  - NAUSEA [None]
  - PARAESTHESIA [None]
